FAERS Safety Report 4549526-0 (Version None)
Quarter: 2005Q1

REPORT INFORMATION
  Report Type: 
  Country: None (occurrence: None)
  Receive Date: 20050111
  Receipt Date: 20041224
  Transmission Date: 20050727
  Serious: Yes (Other)
  Sender: FDA-Public Use
  Company Number: JP-JNJFOC-20050100893

PATIENT
  Sex: Female

DRUGS (4)
  1. ITRIZOLE [Suspect]
     Route: 049
     Dates: start: 20040614, end: 20040913
  2. ITRIZOLE [Suspect]
     Route: 049
     Dates: start: 20040614, end: 20040913
  3. ITRIZOLE [Suspect]
     Route: 049
     Dates: start: 20040614, end: 20040913
  4. ITRIZOLE [Suspect]
     Indication: ONYCHOMYCOSIS
     Route: 049
     Dates: start: 20040614, end: 20040913

REACTIONS (1)
  - PYELONEPHRITIS [None]
